FAERS Safety Report 24237482 (Version 1)
Quarter: 2024Q3

REPORT INFORMATION
  Report Type: Spontaneous
  Country: CN (occurrence: CN)
  Receive Date: 20240822
  Receipt Date: 20240822
  Transmission Date: 20241017
  Serious: Yes (Life-Threatening)
  Sender: FRESENIUS KABI
  Company Number: CN-FreseniusKabi-FK202412622

PATIENT
  Age: 46 Year
  Sex: Male

DRUGS (6)
  1. EGG PHOSPHOLIPIDS\GLYCERIN\MEDIUM-CHAIN TRIGLYCERIDES\SOYBEAN OIL [Suspect]
     Active Substance: EGG PHOSPHOLIPIDS\GLYCERIN\MEDIUM-CHAIN TRIGLYCERIDES\SOYBEAN OIL
     Indication: Nutritional supplementation
     Dosage: FORM OF ADMIN.- INJECTION
     Route: 041
     Dates: start: 20240614, end: 20240630
  2. AMINO ACIDS, SOURCE UNSPECIFIED [Suspect]
     Active Substance: AMINO ACIDS, SOURCE UNSPECIFIED
     Indication: Nutritional supplementation
     Dosage: FORM OF ADMIN.- INJECTION
     Route: 041
     Dates: start: 20240614, end: 20240630
  3. ELECTROLYTES NOS\MINERALS [Suspect]
     Active Substance: ELECTROLYTES NOS\MINERALS
     Indication: Nutritional supplementation
     Dosage: FORM OF ADMIN.- INJECTION
     Route: 041
     Dates: start: 20240614, end: 20240630
  4. POTASSIUM CHLORIDE [Suspect]
     Active Substance: POTASSIUM CHLORIDE
     Indication: Nutritional supplementation
     Dosage: FORM OF ADMIN.- INJECTION?POTASSIUM CHLORIDE INJECTION 10 ML AT THE DROP RATE OF 60 DROPS/MIN
     Route: 041
     Dates: start: 20240614, end: 20240630
  5. VITAMINS [Suspect]
     Active Substance: VITAMINS
     Indication: Nutritional supplementation
     Dosage: FORM OF ADMIN.- POWDER FOR INJECTION
     Route: 041
     Dates: start: 20240614, end: 20240630
  6. DEXTROSE [Suspect]
     Active Substance: DEXTROSE\DEXTROSE MONOHYDRATE
     Indication: Nutritional supplementation
     Dosage: FORM OF ADMIN.- INJECTION?10 PERCENT
     Route: 041
     Dates: start: 20240614, end: 20240630

REACTIONS (3)
  - Dyspnoea [Recovering/Resolving]
  - Heart rate increased [Recovering/Resolving]
  - Blood pressure diastolic increased [Recovering/Resolving]

NARRATIVE: CASE EVENT DATE: 20240630
